FAERS Safety Report 14995274 (Version 1)
Quarter: 2018Q2

REPORT INFORMATION
  Report Type: Spontaneous
  Country: BR (occurrence: BR)
  Receive Date: 20180611
  Receipt Date: 20180611
  Transmission Date: 20180711
  Serious: Yes (Disabling)
  Sender: FDA-Public Use
  Company Number: BR-009507513-1806BRA001452

PATIENT
  Sex: Female
  Weight: 79 kg

DRUGS (2)
  1. JANUMET [Suspect]
     Active Substance: METFORMIN HYDROCHLORIDE\SITAGLIPTIN PHOSPHATE
     Indication: TYPE 2 DIABETES MELLITUS
     Dosage: 50/850 MG-2 TABLETS PER DAY
     Route: 048
     Dates: start: 2015
  2. GLIFAGE [Concomitant]
     Active Substance: METFORMIN HYDROCHLORIDE
     Indication: TYPE 2 DIABETES MELLITUS
     Dosage: 1000 MG, 3 TABLETS IN THE MORNING AND 3 TABLETS AT NIGHT
     Route: 048
     Dates: start: 2015

REACTIONS (4)
  - Prescribed overdose [Unknown]
  - Visual impairment [Unknown]
  - Haemoglobin increased [Unknown]
  - Blood glucose increased [Unknown]
